FAERS Safety Report 6130546-X (Version None)
Quarter: 2009Q1

REPORT INFORMATION
  Report Type: 
  Country: None (occurrence: None)
  Receive Date: 20090323
  Receipt Date: 20090310
  Transmission Date: 20090719
  Serious: Yes (Death, Life-Threatening, Hospitalization)
  Sender: FDA-Public Use
  Company Number: CLOF-10335

PATIENT
  Age: 68 Year
  Sex: Male
  Weight: 81.9 kg

DRUGS (23)
  1. CLOFARABINE AND/OR ARA-C (CODE NOT BROKEN) SOLUTION FOR INFUSION [Suspect]
     Indication: ACUTE MYELOID LEUKAEMIA
     Dosage: BLINDED, INFORMATION WITHHELD
     Dates: start: 20060919, end: 20060923
  2. CYTARABINE [Suspect]
     Indication: ACUTE MYELOID LEUKAEMIA
     Dosage: QDX5, INTRAVENOUS
     Route: 042
     Dates: start: 20060919, end: 20060923
  3. LIPITOR [Concomitant]
  4. ZESTRIL [Concomitant]
  5. EFFEXOR [Concomitant]
  6. ALLOPURINOL [Concomitant]
  7. LEVOFLOXACIN [Concomitant]
  8. DIFLUCAN [Concomitant]
  9. ASPIRIN (SALICYLAMIDE) [Concomitant]
  10. VANCOMYCIN HYDROCHLORIDE [Concomitant]
  11. TOBRAMYCIN (COBRAMYCIN SULFATE) [Concomitant]
  12. NEUPOGEN [Concomitant]
  13. ACETAMINOPHEN [Concomitant]
  14. CEFTRIAXONE (CEFTRIAXONE SODIUM) [Concomitant]
  15. PIPERACILLIN SODIUM W (PIPERACILLIN SODIUM, TAOBACTAM) [Concomitant]
  16. AMPICILLIN (AMPICILLIN TRIHYDRATE) [Concomitant]
  17. FUROSEMIDE (FUROSEMIDE SODIUM) [Concomitant]
  18. DOBUTAMINE HCL [Concomitant]
  19. NOREPINEPHRINE BITARTRATE [Concomitant]
  20. HYDROCORTISONE [Concomitant]
  21. TETRACAINE (TETRACAINE HYDROCHLORIDE) [Concomitant]
  22. MORPHINE [Concomitant]
  23. LORAZEPAM [Concomitant]

REACTIONS (19)
  - ACUTE MYOCARDIAL INFARCTION [None]
  - ACUTE RESPIRATORY DISTRESS SYNDROME [None]
  - BLOOD CULTURE POSITIVE [None]
  - BRAIN HYPOXIA [None]
  - CARDIAC FAILURE CONGESTIVE [None]
  - CONGESTIVE CARDIOMYOPATHY [None]
  - CONJUNCTIVAL HAEMORRHAGE [None]
  - CORYNEBACTERIUM SEPSIS [None]
  - FEBRILE NEUTROPENIA [None]
  - HAEMATOCHEZIA [None]
  - HAEMOPTYSIS [None]
  - HYPOXIC ENCEPHALOPATHY [None]
  - ISCHAEMIC CARDIOMYOPATHY [None]
  - LUNG INFILTRATION [None]
  - PANCYTOPENIA [None]
  - PROTHROMBIN TIME PROLONGED [None]
  - PULMONARY HAEMORRHAGE [None]
  - RESPIRATORY DISTRESS [None]
  - RESPIRATORY FAILURE [None]
